FAERS Safety Report 10571806 (Version 1)
Quarter: 2014Q4

REPORT INFORMATION
  Report Type: Spontaneous
  Country: IT (occurrence: IT)
  Receive Date: 20141107
  Receipt Date: 20141107
  Transmission Date: 20150529
  Serious: Yes (Other)
  Sender: FDA-Public Use
  Company Number: IT-ACTAVIS-2014-23868

PATIENT
  Age: 80 Year
  Sex: Male

DRUGS (1)
  1. CLOPIDOGREL [Suspect]
     Active Substance: CLOPIDOGREL BISULFATE
     Indication: MYOCARDIAL ISCHAEMIA
     Dosage: 75 MG, DAILY
     Route: 048
     Dates: start: 20140128, end: 20140324

REACTIONS (2)
  - Iron deficiency anaemia [Recovered/Resolved]
  - Gastric haemorrhage [Recovered/Resolved]

NARRATIVE: CASE EVENT DATE: 20140313
